FAERS Safety Report 18436786 (Version 4)
Quarter: 2022Q2

REPORT INFORMATION
  Report Type: Report from Study
  Country: US (occurrence: US)
  Receive Date: 20201028
  Receipt Date: 20220517
  Transmission Date: 20220720
  Serious: Yes (Hospitalization)
  Sender: FDA-Public Use
  Company Number: US-JNJFOC-20190428673

PATIENT
  Age: 72 Year
  Sex: Male
  Weight: 98 kg

DRUGS (40)
  1. DARATUMUMAB [Suspect]
     Active Substance: DARATUMUMAB
     Indication: Plasma cell myeloma
     Dosage: DAYS 1, 8, 15, 22 FOR CYCLE 1-2; DAY 1 AND 15 CYCLES 3-6; AND DAY 1 OF 28 DAY CYCLE AFTER
     Route: 042
     Dates: start: 20180828
  2. DARATUMUMAB [Suspect]
     Active Substance: DARATUMUMAB
     Dosage: 1616 MG?MOST RECENT DOSE (1536 MG) ON 03-DEC-2019
     Route: 042
     Dates: start: 20190319
  3. ATEZOLIZUMAB [Suspect]
     Active Substance: ATEZOLIZUMAB
     Indication: Plasma cell myeloma
     Dosage: ON DAYS 2 AND 16 OF CYCLE 1 AND ON DAYS 1 AND 15 OF EACH SUBSEQUENT CYCLES
     Route: 042
     Dates: start: 20180829
  4. ATEZOLIZUMAB [Suspect]
     Active Substance: ATEZOLIZUMAB
     Dosage: MOST RECENT DOSE ON 17-DEC-2019
     Route: 042
     Dates: start: 20190402
  5. POMALIDOMIDE [Suspect]
     Active Substance: POMALIDOMIDE
     Indication: Plasma cell myeloma
     Dosage: FREQUENCY: ON DAYS 1-21 OF EACH 28-DAY CYCLE?MOST RECENT DOSE 2 MG ON 10-JUN-2019
     Route: 048
     Dates: start: 20180828
  6. VITAMIN D3 [Concomitant]
     Active Substance: CHOLECALCIFEROL
     Route: 048
  7. CETIRIZINE HYDROCHLORIDE [Concomitant]
     Active Substance: CETIRIZINE HYDROCHLORIDE
     Indication: Seasonal allergy
     Route: 048
  8. ATENOLOL [Concomitant]
     Active Substance: ATENOLOL
     Indication: Hypertension
     Route: 048
  9. AMLODIPINE [Concomitant]
     Active Substance: AMLODIPINE BESYLATE
     Indication: Hypertension
     Route: 048
  10. FLUTICASONE [Concomitant]
     Active Substance: FLUTICASONE
     Indication: Seasonal allergy
     Route: 055
  11. FUROSEMIDE [Concomitant]
     Active Substance: FUROSEMIDE
     Indication: Chronic kidney disease
     Route: 048
  12. LORAZEPAM [Concomitant]
     Active Substance: LORAZEPAM
     Indication: Anxiety
     Route: 048
  13. OMEPRAZOLE [Concomitant]
     Active Substance: OMEPRAZOLE
     Indication: Gastrooesophageal reflux disease
     Route: 048
  14. TRAZODONE [Concomitant]
     Active Substance: TRAZODONE HYDROCHLORIDE
     Indication: Depression
     Route: 048
  15. ACYCLOVIR [Concomitant]
     Active Substance: ACYCLOVIR
     Route: 048
     Dates: start: 20180925
  16. HYDRALAZINE [Concomitant]
     Active Substance: HYDRALAZINE HYDROCHLORIDE
     Indication: Hypertension
     Route: 048
     Dates: start: 20180925
  17. DIPHENHYDRAMINE HYDROCHLORIDE\IBUPROFEN [Concomitant]
     Active Substance: DIPHENHYDRAMINE HYDROCHLORIDE\IBUPROFEN
     Indication: Pain
     Route: 048
  18. LOPERAMIDE [Concomitant]
     Active Substance: LOPERAMIDE
     Route: 048
  19. ACETAMINOPHEN [Concomitant]
     Active Substance: ACETAMINOPHEN
     Indication: Premedication
     Route: 048
     Dates: start: 20180828
  20. DIPHENHYDRAMINE [Concomitant]
     Active Substance: DIPHENHYDRAMINE
     Indication: Premedication
     Route: 048
     Dates: start: 20180828
  21. ASPIRIN [Concomitant]
     Active Substance: ASPIRIN
     Indication: Thrombosis prophylaxis
     Route: 048
  22. AMOXICILLIN\CLAVULANIC ACID [Concomitant]
     Active Substance: AMOXICILLIN\CLAVULANIC ACID
  23. LEVOFLOXACIN [Concomitant]
     Active Substance: LEVOFLOXACIN
  24. MONTELUKAST [Concomitant]
     Active Substance: MONTELUKAST SODIUM
  25. OXYCODONE [Concomitant]
     Active Substance: OXYCODONE
     Indication: Pain
  26. PRAMOXINE [Concomitant]
     Active Substance: PRAMOXINE
  27. WHITE PETROLATUM MINERAL OIL [Concomitant]
     Indication: Dry skin
  28. VANCOMYCIN [Concomitant]
     Active Substance: VANCOMYCIN
     Indication: Haemorrhoids
  29. ZINC OXIDE [Concomitant]
     Active Substance: ZINC OXIDE
     Indication: Haemorrhoids
  30. PANTOPRAZOLE SODIUM [Concomitant]
     Active Substance: PANTOPRAZOLE SODIUM
     Indication: Gastrooesophageal reflux disease
  31. OSELTAMIVIR [Concomitant]
     Active Substance: OSELTAMIVIR
     Indication: Antiviral prophylaxis
  32. MOCOUGH [Concomitant]
     Indication: Cough
  33. GUAIFENESIN [Concomitant]
     Active Substance: GUAIFENESIN
     Indication: Cough
  34. CEFEPIME [Concomitant]
     Active Substance: CEFEPIME HYDROCHLORIDE
     Indication: Antiviral prophylaxis
  35. CAMPHOR [Concomitant]
     Active Substance: CAMPHOR
  36. MENTHOL [Concomitant]
     Active Substance: MENTHOL
     Indication: Dry skin
  37. BENZOCAINE [Concomitant]
     Active Substance: BENZOCAINE
     Indication: Oropharyngeal pain
  38. PEPPERMINT OIL [Concomitant]
     Active Substance: PEPPERMINT OIL
  39. BACITRACIN [Concomitant]
     Active Substance: BACITRACIN
  40. POLYMYXIN B [Concomitant]
     Active Substance: POLYMYXIN B

REACTIONS (2)
  - Febrile neutropenia [Recovered/Resolved]
  - Influenza [Recovered/Resolved]

NARRATIVE: CASE EVENT DATE: 20190410
